FAERS Safety Report 7077041-1 (Version None)
Quarter: 2010Q4

REPORT INFORMATION
  Report Type: 
  Country: None (occurrence: None)
  Receive Date: 20101101
  Receipt Date: 20101020
  Transmission Date: 20110411
  Serious: Yes (Death, Other)
  Sender: FDA-Public Use
  Company Number: JP-ROCHE-731969

PATIENT
  Sex: Male
  Weight: 52 kg

DRUGS (13)
  1. AVASTIN [Suspect]
     Indication: LUNG ADENOCARCINOMA METASTATIC
     Dosage: DRUG DISCONTINUED, 15 MG/KG
     Route: 041
     Dates: start: 20100906, end: 20100906
  2. AVASTIN [Suspect]
     Route: 041
     Dates: start: 20100927, end: 20100927
  3. CARBOPLATIN [Concomitant]
     Route: 041
     Dates: start: 20100906, end: 20100906
  4. CARBOPLATIN [Concomitant]
     Route: 041
     Dates: start: 20100927, end: 20100927
  5. PACLITAXEL [Concomitant]
     Route: 041
     Dates: start: 20100906, end: 20100906
  6. PACLITAXEL [Concomitant]
     Route: 041
     Dates: start: 20100927, end: 20100927
  7. MAGMITT [Concomitant]
     Dosage: FORM: PERORAL AGENT
     Route: 048
  8. OXYCONTIN [Concomitant]
     Dosage: FORM: SUSTAINED- RELEASE TABLET
     Route: 048
  9. OXINORM [Concomitant]
     Dosage: FORM: POWDERED MEDICINE, 5 MGX1-2/DAY
     Route: 048
  10. PURSENNID [Concomitant]
     Dosage: FORM: PERORAL AGENT
     Route: 048
  11. TAKEPRON [Concomitant]
     Route: 048
  12. PREDNISOLONE [Concomitant]
     Dosage: 5-15 MG, FORM: PERORAL AGENT
     Route: 048
     Dates: start: 20100906, end: 20100911
  13. NAUZELIN [Concomitant]
     Dosage: FORM: PERORAL AGENT
     Route: 048
     Dates: start: 20100906, end: 20100911

REACTIONS (18)
  - ANAEMIA [None]
  - ASPHYXIA [None]
  - ATELECTASIS [None]
  - BLOOD PRESSURE DECREASED [None]
  - CARDIO-RESPIRATORY ARREST [None]
  - CHILLS [None]
  - DECREASED APPETITE [None]
  - DEPRESSED LEVEL OF CONSCIOUSNESS [None]
  - FEBRILE NEUTROPENIA [None]
  - GASTROINTESTINAL HAEMORRHAGE [None]
  - HAEMOPTYSIS [None]
  - HYPERTHERMIA [None]
  - INSOMNIA [None]
  - MYDRIASIS [None]
  - PNEUMONIA [None]
  - PO2 DECREASED [None]
  - PULMONARY HAEMORRHAGE [None]
  - RESPIRATORY ARREST [None]
